FAERS Safety Report 6585583-8 (Version None)
Quarter: 2010Q1

REPORT INFORMATION
  Report Type: 
  Country: None (occurrence: None)
  Receive Date: 20100217
  Receipt Date: 20100208
  Transmission Date: 20100710
  Serious: Yes (Life-Threatening, Hospitalization)
  Sender: FDA-Public Use
  Company Number: IT-BRISTOL-MYERS SQUIBB COMPANY-14971584

PATIENT
  Age: 39 Year
  Sex: Male

DRUGS (2)
  1. REYATAZ [Suspect]
     Indication: HIV INFECTION
     Dosage: 15SEP08 DOSE:300 MG TO 400 MG
     Dates: start: 20080416
  2. KIVEXA [Suspect]
     Dates: start: 20080416

REACTIONS (1)
  - PANCREATITIS ACUTE [None]
